FAERS Safety Report 6898790-1 (Version None)
Quarter: 2010Q3

REPORT INFORMATION
  Report Type: 
  Country: None (occurrence: None)
  Receive Date: 20100802
  Receipt Date: 20071128
  Transmission Date: 20110219
  Serious: No
  Sender: FDA-Public Use
  Company Number: US-PFIZER INC-2007084395

PATIENT
  Age: 73 Year
  Sex: Female
  Weight: 71.7 kg

DRUGS (3)
  1. LYRICA [Suspect]
     Indication: NEUROPATHY PERIPHERAL
     Route: 048
     Dates: start: 20071001, end: 20071007
  2. PREDNISONE [Concomitant]
  3. LORTAB [Concomitant]
     Dosage: NA EVERY 6 HOURS7.5/325
     Route: 048

REACTIONS (2)
  - DISTURBANCE IN ATTENTION [None]
  - OEDEMA [None]
